FAERS Safety Report 4942924-2 (Version None)
Quarter: 2006Q1

REPORT INFORMATION
  Report Type: 
  Country: None (occurrence: None)
  Receive Date: 20060314
  Receipt Date: 20060127
  Transmission Date: 20060701
  Serious: Yes (Death, Hospitalization)
  Sender: FDA-Public Use
  Company Number: US-AMGEN-US163646

PATIENT
  Sex: Male
  Weight: 93.1 kg

DRUGS (12)
  1. ARANESP [Suspect]
     Indication: ANAEMIA OF MALIGNANT DISEASE
     Route: 058
     Dates: start: 20040726, end: 20051229
  2. FLOMAX [Concomitant]
  3. DYAZIDE [Concomitant]
     Route: 048
  4. FERROUS SULFATE TAB [Concomitant]
  5. PYRIDOXINE HCL [Concomitant]
  6. COUMADIN [Concomitant]
  7. COMPAZINE [Concomitant]
  8. LOMOTIL [Concomitant]
     Route: 048
  9. BENADRYL [Concomitant]
  10. NOVANTRONE [Concomitant]
  11. PROCARDIA [Concomitant]
     Route: 048
  12. PERCOCET [Concomitant]
     Route: 048

REACTIONS (3)
  - CARDIAC DISORDER [None]
  - RASH MACULO-PAPULAR [None]
  - RASH PRURITIC [None]
